FAERS Safety Report 10589508 (Version 1)
Quarter: 2014Q4

REPORT INFORMATION
  Report Type: Spontaneous
  Country: US (occurrence: US)
  Receive Date: 20141118
  Receipt Date: 20141118
  Transmission Date: 20150529
  Serious: Yes (Death, Hospitalization, Other)
  Sender: FDA-Public Use
  Company Number: US-JNJFOC-20141109078

PATIENT

DRUGS (1)
  1. IBUPROFEN. [Suspect]
     Active Substance: IBUPROFEN
     Indication: PATENT DUCTUS ARTERIOSUS REPAIR
     Dosage: EARLY THERAPEUTIC (2?7 DAY)
     Route: 042

REACTIONS (10)
  - Renal failure [Unknown]
  - Gastrointestinal surgery [Unknown]
  - Persistent foetal circulation [Unknown]
  - Product use issue [Unknown]
  - Bronchopulmonary dysplasia [Unknown]
  - Periventricular leukomalacia [Unknown]
  - Necrotising colitis [Unknown]
  - Intraventricular haemorrhage [Unknown]
  - Death [Fatal]
  - Pulmonary haemorrhage [Unknown]
